FAERS Safety Report 4984571-2 (Version None)
Quarter: 2006Q2

REPORT INFORMATION
  Report Type: 
  Country: None (occurrence: None)
  Receive Date: 20060421
  Receipt Date: 20060412
  Transmission Date: 20061013
  Serious: Yes (Hospitalization)
  Sender: FDA-Public Use
  Company Number: 2006BI005416

PATIENT
  Age: 48 Year
  Sex: Female
  Weight: 85 kg

DRUGS (3)
  1. AVONEX [Suspect]
     Indication: MULTIPLE SCLEROSIS
     Dosage: 30 UG, QM; IM
     Route: 030
  2. AVONEX [Suspect]
     Indication: MULTIPLE SCLEROSIS
     Dosage: 30 UG, QW; IM
     Route: 030
  3. VOTUM [Concomitant]

REACTIONS (2)
  - ERYSIPELAS [None]
  - LIMB INJURY [None]
